FAERS Safety Report 4515200-X (Version None)
Quarter: 2004Q4

REPORT INFORMATION
  Report Type: 
  Country: None (occurrence: None)
  Receive Date: 20041129
  Receipt Date: 20041129
  Transmission Date: 20050328
  Serious: Yes (Other)
  Sender: FDA-Public Use
  Company Number: None

PATIENT
  Sex: Female
  Weight: 53.5244 kg

DRUGS (4)
  1. TIAGABINE [Suspect]
     Indication: SCHIZOPHRENIA
     Dosage: TIAGABINE 12 MG PO BID
     Route: 048
     Dates: start: 20041027, end: 20041116
  2. OLANZAPINE [Concomitant]
  3. FLUOXETINE [Concomitant]
  4. CLONAZEPAM [Concomitant]

REACTIONS (9)
  - CONFUSIONAL STATE [None]
  - HYPERREFLEXIA [None]
  - ILLITERACY [None]
  - MENTAL STATUS CHANGES [None]
  - MYDRIASIS [None]
  - NAUSEA [None]
  - TACHYPNOEA [None]
  - TREMOR [None]
  - VOMITING [None]
